FAERS Safety Report 25191716 (Version 1)
Quarter: 2025Q2

REPORT INFORMATION
  Report Type: Spontaneous
  Country: US (occurrence: None)
  Receive Date: 20250411
  Receipt Date: 20250411
  Transmission Date: 20250716
  Serious: Yes (Hospitalization)
  Sender: FDA-CTU
  Company Number: None

PATIENT
  Age: 69 Year
  Sex: Male

DRUGS (2)
  1. XCOPRI [Suspect]
     Active Substance: CENOBAMATE
     Indication: Epilepsy
     Dosage: FREQUENCY : DAILY;?
     Route: 048
     Dates: start: 20240525
  2. XCOPRI [Suspect]
     Active Substance: CENOBAMATE

REACTIONS (4)
  - Balance disorder [None]
  - Therapy interrupted [None]
  - Therapy change [None]
  - Unevaluable event [None]
